FAERS Safety Report 12380026 (Version 1)
Quarter: 2016Q2

REPORT INFORMATION
  Report Type: Spontaneous
  Country: GB (occurrence: GB)
  Receive Date: 20160518
  Receipt Date: 20160518
  Transmission Date: 20160815
  Serious: Yes (Other)
  Sender: FDA-Public Use
  Company Number: GB-ROCHE-1619760

PATIENT
  Sex: Male

DRUGS (1)
  1. HERCEPTIN [Suspect]
     Active Substance: TRASTUZUMAB
     Indication: PRODUCT USED FOR UNKNOWN INDICATION
     Route: 058

REACTIONS (14)
  - Syncope [Unknown]
  - Visual acuity reduced [Unknown]
  - Pain in extremity [Unknown]
  - Muscle atrophy [Unknown]
  - Peroneal nerve palsy [Unknown]
  - Neck pain [Unknown]
  - Musculoskeletal pain [Unknown]
  - Diarrhoea [Unknown]
  - Vomiting [Unknown]
  - Neuropathy peripheral [Unknown]
  - Fatigue [Unknown]
  - Energy increased [Unknown]
  - Arthralgia [Unknown]
  - Blindness unilateral [Unknown]
